FAERS Safety Report 24464552 (Version 1)
Quarter: 2024Q4

REPORT INFORMATION
  Report Type: Report from Study
  Country: US (occurrence: US)
  Receive Date: 20241018
  Receipt Date: 20241018
  Transmission Date: 20250114
  Serious: No
  Sender: ROCHE
  Company Number: US-ROCHE-3502991

PATIENT
  Age: 74 Year
  Sex: Female
  Weight: 59.42 kg

DRUGS (4)
  1. XOLAIR [Suspect]
     Active Substance: OMALIZUMAB
     Indication: Idiopathic urticaria
     Dosage: 150MG IN EACH THIGH ;ONGOING: YES
     Route: 058
     Dates: start: 20231101
  2. XOLAIR [Suspect]
     Active Substance: OMALIZUMAB
  3. DAPSONE [Concomitant]
     Active Substance: DAPSONE
     Indication: Urticaria
  4. CODEINE [Concomitant]
     Active Substance: CODEINE

REACTIONS (2)
  - Dizziness [Recovered/Resolved]
  - Abnormal faeces [Not Recovered/Not Resolved]

NARRATIVE: CASE EVENT DATE: 20240122
